FAERS Safety Report 13244599 (Version 1)
Quarter: 2017Q1

REPORT INFORMATION
  Report Type: Spontaneous
  Country: US (occurrence: US)
  Receive Date: 20170217
  Receipt Date: 20170217
  Transmission Date: 20170428
  Serious: Yes (Hospitalization)
  Sender: FDA-Public Use
  Company Number: US-BAYER-2017-032269

PATIENT
  Sex: Female

DRUGS (2)
  1. GADAVIST [Suspect]
     Active Substance: GADOBUTROL
     Indication: DIZZINESS
     Dosage: 10 ML, ONCE
     Route: 042
  2. GADAVIST [Suspect]
     Active Substance: GADOBUTROL
     Indication: CEREBRAL DISORDER

REACTIONS (5)
  - Swelling face [Recovered/Resolved]
  - Urticaria [Recovered/Resolved]
  - Anaphylactoid reaction [Recovered/Resolved]
  - Heart rate increased [Recovered/Resolved]
  - Ocular hyperaemia [Recovered/Resolved]
